FAERS Safety Report 16898419 (Version 1)
Quarter: 2019Q4

REPORT INFORMATION
  Report Type: Report from Study
  Country: ES (occurrence: ES)
  Receive Date: 20191009
  Receipt Date: 20191009
  Transmission Date: 20200122
  Serious: Yes (Other)
  Sender: FDA-Public Use
  Company Number: ES-TEVA-2019-ES-1118588

PATIENT
  Age: 52 Year
  Sex: Female

DRUGS (7)
  1. CODEINA [Concomitant]
     Active Substance: CODEINE
     Indication: PHARYNGITIS
     Dosage: DOSE/DATE
     Route: 048
     Dates: start: 20190924
  2. ORFIDAL [Concomitant]
     Active Substance: LORAZEPAM
     Indication: ANXIETY
     Dosage: 1 MILLIGRAM DAILY;
     Route: 048
     Dates: start: 20160126
  3. ACIDO ASCORBICO [Concomitant]
     Active Substance: ASCORBIC ACID
     Indication: PHARYNGITIS
     Dosage: DOSE/DATE
     Route: 048
     Dates: start: 20190924
  4. PARACETAMOL [Concomitant]
     Active Substance: ACETAMINOPHEN
     Indication: PHARYNGITIS
     Dosage: DOSE/DATE
     Route: 048
     Dates: start: 20190924
  5. PROGEVERA [Concomitant]
     Active Substance: MEDROXYPROGESTERONE ACETATE
     Indication: PHARYNGITIS
     Dosage: DOSE/DATE
     Route: 048
     Dates: start: 20190717
  6. IBUPROFENO [Concomitant]
     Active Substance: IBUPROFEN
     Indication: PHARYNGITIS
     Dosage: DOSE/DATE, SINCE 20-APR-2019
     Route: 048
     Dates: start: 20190417
  7. COPAXONE [Suspect]
     Active Substance: GLATIRAMER ACETATE
     Indication: RELAPSING-REMITTING MULTIPLE SCLEROSIS
     Route: 058
     Dates: start: 20160219

REACTIONS (1)
  - Pharyngitis [Not Recovered/Not Resolved]

NARRATIVE: CASE EVENT DATE: 20190924
